FAERS Safety Report 24202575 (Version 1)
Quarter: 2024Q3

REPORT INFORMATION
  Report Type: Spontaneous
  Country: US (occurrence: US)
  Receive Date: 20240813
  Receipt Date: 20240813
  Transmission Date: 20241016
  Serious: Yes (Other)
  Sender: AUROBINDO
  Company Number: US-AUROBINDO-AUR-APL-2024-039067

PATIENT
  Age: 25 Year
  Sex: Male

DRUGS (3)
  1. LEVOTHYROXINE SODIUM [Suspect]
     Active Substance: LEVOTHYROXINE SODIUM
     Indication: Product used for unknown indication
     Dosage: 150 MILLIGRAM (OF 30-40 TABLETS)
     Route: 065
  2. KEPPRA [Suspect]
     Active Substance: LEVETIRACETAM
     Indication: Product used for unknown indication
     Dosage: 500 MILLIGRAM (OF 25 TABLETS)
     Route: 065
  3. PROPRANOLOL [Suspect]
     Active Substance: PROPRANOLOL HYDROCHLORIDE
     Indication: Product used for unknown indication
     Dosage: 10 MILLIGRAM (OF 25 TABLETS AT NIGHT 9 PM)
     Route: 065

REACTIONS (5)
  - Thyrotoxic crisis [Unknown]
  - Blood bilirubin increased [Unknown]
  - Blood creatine phosphokinase increased [Unknown]
  - Intentional overdose [Unknown]
  - Intentional product misuse [Unknown]
